FAERS Safety Report 9971173 (Version 1)
Quarter: 2014Q1

REPORT INFORMATION
  Report Type: Spontaneous
  Country: US (occurrence: None)
  Receive Date: 20140305
  Receipt Date: 20140305
  Transmission Date: 20141002
  Serious: No
  Sender: FDA-Public Use
  Company Number: None

PATIENT
  Age: 47 Year
  Sex: Female
  Weight: 67.13 kg

DRUGS (4)
  1. LEVOFLOXACIN [Suspect]
     Indication: URINARY TRACT INFECTION
     Dosage: 1 PILL
     Route: 048
     Dates: start: 20131007, end: 20131011
  2. CIPROFLOXACIN [Suspect]
     Indication: URINARY TRACT INFECTION
     Dosage: 1 PILL
     Route: 048
     Dates: start: 20130807, end: 20130812
  3. RIZATRIPTAN [Concomitant]
  4. PROBIOTICS [Concomitant]

REACTIONS (8)
  - Sepsis [None]
  - Fatigue [None]
  - Dizziness [None]
  - Malaise [None]
  - Asthenia [None]
  - Migraine [None]
  - Contusion [None]
  - Tendon pain [None]
